FAERS Safety Report 20916943 (Version 3)
Quarter: 2022Q3

REPORT INFORMATION
  Report Type: Report from Study
  Country: AR (occurrence: AR)
  Receive Date: 20220606
  Receipt Date: 20220811
  Transmission Date: 20221027
  Serious: Yes (Hospitalization)
  Sender: FDA-Public Use
  Company Number: AR-BIOGEN-2022BI01128552

PATIENT
  Sex: Female

DRUGS (6)
  1. TECFIDERA [Suspect]
     Active Substance: DIMETHYL FUMARATE
     Indication: Multiple sclerosis
     Dosage: 120 MG PER NIGHT FIRST WEEK
     Route: 050
     Dates: start: 20201109, end: 20201115
  2. TECFIDERA [Suspect]
     Active Substance: DIMETHYL FUMARATE
     Dosage: 120 MG TWICE PER DAY (MORNING AND NIGHT) SECOND WEEK
     Route: 050
     Dates: start: 20201116, end: 20201122
  3. TECFIDERA [Suspect]
     Active Substance: DIMETHYL FUMARATE
     Dosage: 120 MG AT MORNING AND 240 MG AT NIGHT THIRD WEEK
     Route: 050
     Dates: start: 20201123, end: 20201129
  4. TECFIDERA [Suspect]
     Active Substance: DIMETHYL FUMARATE
     Dosage: 240 MG TWICE PER DAY (MORNING AND NIGHT) FOURTH WEEK
     Route: 050
     Dates: start: 20201130, end: 20201206
  5. TECFIDERA [Suspect]
     Active Substance: DIMETHYL FUMARATE
     Route: 050
     Dates: end: 202105
  6. COSOPT [Concomitant]
     Active Substance: DORZOLAMIDE HYDROCHLORIDE\TIMOLOL MALEATE
     Indication: Glaucoma
     Route: 050

REACTIONS (1)
  - Thyroid cancer [Not Recovered/Not Resolved]
